FAERS Safety Report 11239196 (Version 1)
Quarter: 2015Q3

REPORT INFORMATION
  Report Type: Spontaneous
  Country: DE (occurrence: DE)
  Receive Date: 20150706
  Receipt Date: 20150706
  Transmission Date: 20151125
  Serious: Yes (Other)
  Sender: FDA-Public Use
  Company Number: DE-SUN PHARMACEUTICAL INDUSTRIES LTD-2015RR-099677

PATIENT

DRUGS (3)
  1. VENLAFAXINE [Suspect]
     Active Substance: VENLAFAXINE HYDROCHLORIDE
     Indication: DEPRESSION
     Dosage: 75 MG/DAY, INITIAL 37.5 MG/DAY, FROM WEEK 16 DOSAGE INCREASED TO 75 MG/DAY
     Route: 048
     Dates: start: 20140815, end: 20150204
  2. CYTOTEC [Concomitant]
     Active Substance: MISOPROSTOL
     Indication: LABOUR INDUCTION
     Dosage: 0.2 MG, DAILY, GESTATIONAL WEEK 36.6
     Route: 065
     Dates: start: 20150203, end: 20150203
  3. GYNVITAL GRAVIDA [Concomitant]
     Active Substance: HERBALS
     Indication: PROPHYLAXIS OF NEURAL TUBE DEFECT
     Dosage: 0.4 MG, DAILY, DURING GESTATIONAL WEEK 3.4-3.7
     Route: 048
     Dates: start: 20140615, end: 20150204

REACTIONS (4)
  - Placental insufficiency [Recovered/Resolved]
  - Maternal drugs affecting foetus [None]
  - Foetal death [Recovered/Resolved]
  - Exposure during pregnancy [None]
